FAERS Safety Report 5385581-6 (Version None)
Quarter: 2007Q3

REPORT INFORMATION
  Report Type: 
  Country: None (occurrence: None)
  Receive Date: 20070710
  Receipt Date: 20070627
  Transmission Date: 20080115
  Serious: Yes (Hospitalization)
  Sender: FDA-Public Use
  Company Number: 2007JP003020

PATIENT
  Age: 73 Year
  Sex: Male

DRUGS (2)
  1. VESICARE [Suspect]
     Indication: URINARY TRACT DISORDER
     Dosage: 5 MG, /D, ORAL
     Route: 048
     Dates: start: 20070309, end: 20070626
  2. SENNOSIDE (SENNOSIDE A+B CALCIUM) [Concomitant]

REACTIONS (4)
  - GASTRIC ULCER [None]
  - HIATUS HERNIA [None]
  - IMPAIRED GASTRIC EMPTYING [None]
  - REFLUX OESOPHAGITIS [None]
